FAERS Safety Report 9348346 (Version 2)
Quarter: 2013Q2

REPORT INFORMATION
  Report Type: Spontaneous
  Country: US (occurrence: US)
  Receive Date: 20130614
  Receipt Date: 20130628
  Transmission Date: 20140414
  Serious: No
  Sender: FDA-Public Use
  Company Number: US-PFIZER INC-2013176301

PATIENT
  Age: 6 Year
  Sex: Female

DRUGS (1)
  1. LEVOXYL [Suspect]
     Indication: CONGENITAL HYPOTHYROIDISM
     Dosage: 88 UG, 1X/DAY

REACTIONS (2)
  - Weight increased [Unknown]
  - Emotional disorder [Unknown]
